FAERS Safety Report 25856183 (Version 3)
Quarter: 2025Q4

REPORT INFORMATION
  Report Type: Report from Study
  Country: CA (occurrence: CA)
  Receive Date: 20250928
  Receipt Date: 20251015
  Transmission Date: 20260117
  Serious: Yes (Hospitalization, Other)
  Sender: ALEXION PHARMACEUTICALS
  Company Number: CA-AstraZeneca-CH-00956170A

PATIENT
  Sex: Male

DRUGS (8)
  1. TEZEPELUMAB [Suspect]
     Active Substance: TEZEPELUMAB
     Indication: Asthma
     Dosage: 210 MILLIGRAM
  2. TEZEPELUMAB [Suspect]
     Active Substance: TEZEPELUMAB
  3. PREDNISONE [Concomitant]
     Active Substance: PREDNISONE
     Dosage: 5 MILLIGRAM, QD
     Route: 065
  4. TRELEGY ELLIPTA [Concomitant]
     Active Substance: FLUTICASONE FUROATE\UMECLIDINIUM BROMIDE\VILANTEROL TRIFENATATE
     Dosage: 200 MICROGRAM 1INH, QD
     Route: 065
  5. VENTOLIN [Concomitant]
     Active Substance: ALBUTEROL SULFATE
     Dosage: 100 MICROGRAM, AS NEEDED
     Route: 065
  6. BREO ELLIPTA [Concomitant]
     Active Substance: FLUTICASONE FUROATE\VILANTEROL TRIFENATATE
     Dosage: UNK
     Route: 065
  7. SINGULAIR [Concomitant]
     Active Substance: MONTELUKAST SODIUM
     Dosage: 10 MILLIGRAM, QD
     Route: 065
  8. LEVOFLOXACIN [Concomitant]
     Active Substance: LEVOFLOXACIN
     Dosage: 5 MILLIGRAM
     Route: 065

REACTIONS (6)
  - Abdominal pain upper [Unknown]
  - Pneumonia [Unknown]
  - Tendonitis [Unknown]
  - Hyperchlorhydria [Unknown]
  - Bronchitis [Unknown]
  - Lack of concomitant drug effect [Unknown]
